FAERS Safety Report 11288059 (Version 1)
Quarter: 2015Q3

REPORT INFORMATION
  Report Type: Spontaneous
  Country: SG (occurrence: SG)
  Receive Date: 20150721
  Receipt Date: 20150721
  Transmission Date: 20151125
  Serious: Yes (Other)
  Sender: FDA-Public Use
  Company Number: SG-BAYER-2015-378589

PATIENT
  Age: 44 Year
  Sex: Female

DRUGS (3)
  1. SYNFLEX [Suspect]
     Active Substance: NAPROXEN SODIUM
     Dosage: UNK
  2. INDOMETACIN [Suspect]
     Active Substance: INDOMETHACIN
     Dosage: UNK
  3. ACETYLSALICYLIC ACID (} 100 MG) [Suspect]
     Active Substance: ASPIRIN
     Dosage: UNK

REACTIONS (1)
  - Periorbital oedema [Unknown]

NARRATIVE: CASE EVENT DATE: 20150612
